FAERS Safety Report 4649669-7 (Version None)
Quarter: 2005Q2

REPORT INFORMATION
  Report Type: 
  Country: None (occurrence: None)
  Receive Date: 20050502
  Receipt Date: 20040910
  Transmission Date: 20051028
  Serious: Yes (Death, Life-Threatening, Hospitalization)
  Sender: FDA-Public Use
  Company Number: US-SANOFI-SYNTHELABO-F01200402772

PATIENT
  Sex: Female
  Weight: 58.1 kg

DRUGS (25)
  1. OXALIPLATIN [Suspect]
     Indication: NON-SMALL CELL LUNG CANCER
     Route: 042
     Dates: start: 20040812, end: 20040812
  2. GEMCITABINE [Suspect]
     Route: 042
     Dates: start: 20040812, end: 20040812
  3. ULTRACET [Concomitant]
     Indication: FIBROMYALGIA
     Dosage: 375/325 MG QID
     Route: 048
     Dates: start: 20040501
  4. MORPHINE SULFATE [Concomitant]
     Indication: FIBROMYALGIA
     Route: 048
     Dates: start: 19960101
  5. CYCLOBENZAPRIN [Concomitant]
     Indication: FIBROMYALGIA
     Dosage: 10 MG
     Route: 048
     Dates: start: 19960101
  6. LEVOXYL [Concomitant]
     Indication: THYROID DISORDER
     Dosage: 88 MCG
     Route: 048
     Dates: start: 19550101
  7. PREMARIN [Concomitant]
     Indication: FIBROMYALGIA
     Dosage: 0.625 MG
     Route: 048
     Dates: start: 20030904
  8. MEDROXYPROGESTERONE ACETATE [Concomitant]
     Indication: FIBROMYALGIA
     Dosage: 2.5 MG
     Route: 048
     Dates: start: 20030904
  9. TRAZODONE HCL [Concomitant]
     Indication: DEPRESSION
     Dosage: 50 MG
     Route: 048
     Dates: start: 19990101
  10. CLONAZEPAM [Concomitant]
     Indication: FIBROMYALGIA
     Route: 048
     Dates: start: 19990101
  11. ALOXI [Concomitant]
     Indication: PREMEDICATION
     Dosage: 25 MG
     Route: 042
     Dates: start: 20040610, end: 20040902
  12. DECADRON [Concomitant]
     Indication: PREMEDICATION
     Dosage: 8 MG
     Route: 042
     Dates: start: 20040610, end: 20040902
  13. BENADRYL [Concomitant]
     Indication: PREMEDICATION
     Route: 042
     Dates: start: 20040617, end: 20040902
  14. NEURONTIN [Concomitant]
     Indication: NEUROPATHY
     Dosage: 100 MG
     Route: 048
     Dates: start: 20040610
  15. ATIVAN [Concomitant]
     Indication: PREMEDICATION
     Route: 042
     Dates: start: 20040610, end: 20040902
  16. ZOFRAN [Concomitant]
     Indication: NAUSEA
     Route: 048
     Dates: start: 20040615
  17. COMPAZINE [Concomitant]
     Indication: NAUSEA
     Route: 048
     Dates: start: 20040615
  18. IMODIUM [Concomitant]
     Indication: DIARRHOEA
     Dosage: 2-4 MG PRN
     Route: 048
     Dates: start: 20040615
  19. ZOLOFT [Concomitant]
     Indication: DEPRESSION
     Dosage: 150 MG
     Route: 048
     Dates: start: 20040706
  20. ZOLOFT [Concomitant]
     Indication: FIBROMYALGIA
     Dosage: 150 MG
     Route: 048
     Dates: start: 20040706
  21. FOLIC ACID [Concomitant]
     Indication: ANAEMIA
     Dosage: 1 MG
     Route: 048
     Dates: start: 20040726
  22. ARANESP [Concomitant]
     Indication: ANAEMIA
     Route: 058
     Dates: start: 20040722
  23. PLATELETS [Concomitant]
     Indication: PLATELET COUNT DECREASED
     Dosage: 6 UNIT
     Route: 042
     Dates: start: 20040821, end: 20040821
  24. LEVAQUIN [Concomitant]
     Indication: LUNG INFILTRATION
     Dosage: 500 MG
     Route: 048
     Dates: start: 20040902
  25. LEVAQUIN [Concomitant]
     Indication: DYSPNOEA
     Dosage: 500 MG
     Route: 048
     Dates: start: 20040902

REACTIONS (12)
  - ANAEMIA [None]
  - CONDUCTION DISORDER [None]
  - DRUG TOXICITY [None]
  - HYPERSENSITIVITY [None]
  - HYPOKALAEMIA [None]
  - HYPOXIA [None]
  - INFLAMMATION [None]
  - OPPORTUNISTIC INFECTION [None]
  - PNEUMONITIS [None]
  - THERAPY NON-RESPONDER [None]
  - THROMBOCYTOPENIA [None]
  - VIRAL INFECTION [None]
